FAERS Safety Report 9721007 (Version 2)
Quarter: 2014Q2

REPORT INFORMATION
  Report Type: Report from Study
  Country: BR (occurrence: BR)
  Receive Date: 20131129
  Receipt Date: 20140404
  Transmission Date: 20141212
  Serious: Yes (Other)
  Sender: FDA-Public Use
  Company Number: BR-ABBVIE-13P-020-1173164-00

PATIENT
  Age: 66 Year
  Sex: Female
  Weight: 50 kg

DRUGS (15)
  1. HUMIRA [Suspect]
     Indication: ANKYLOSING SPONDYLITIS
     Route: 058
     Dates: start: 20101021, end: 20130401
  2. VELCADE [Suspect]
     Indication: PLASMA CELL MYELOMA
     Dosage: 1 DOSE
     Route: 030
     Dates: start: 20130731, end: 20130814
  3. VITAMINS NOS [Concomitant]
     Indication: PRODUCT USED FOR UNKNOWN INDICATION
  4. SELOZOK [Concomitant]
     Indication: HYPERTENSION
     Route: 048
     Dates: start: 2012
  5. DIOVAN [Concomitant]
     Indication: HYPERTENSION
     Route: 048
     Dates: start: 2012
  6. DURAGESIC [Concomitant]
     Indication: PAIN
     Dosage: 1 PATCH DURING 3 DAYS
     Route: 062
     Dates: start: 201308
  7. VONAU [Concomitant]
     Indication: NAUSEA
     Route: 060
     Dates: start: 201308
  8. ESCITALOPRAM OXALATE [Concomitant]
     Indication: DEPRESSION
     Route: 048
     Dates: start: 201308
  9. TRAMAL [Concomitant]
     Indication: PAIN
  10. LYRICA [Concomitant]
     Indication: PRODUCT USED FOR UNKNOWN INDICATION
  11. VITAMIN B [Concomitant]
     Indication: PRODUCT USED FOR UNKNOWN INDICATION
  12. VITAMIN C [Concomitant]
     Indication: PRODUCT USED FOR UNKNOWN INDICATION
  13. VITAMIN E [Concomitant]
     Indication: PRODUCT USED FOR UNKNOWN INDICATION
  14. LACTULOSE [Concomitant]
     Indication: GASTROINTESTINAL DISORDER
  15. ALENIA [Concomitant]
     Indication: RESPIRATORY DISORDER

REACTIONS (17)
  - Diplegia [Not Recovered/Not Resolved]
  - Plasma cell myeloma [Not Recovered/Not Resolved]
  - Renal disorder [Unknown]
  - Anaemia [Recovered/Resolved]
  - Asthenia [Recovering/Resolving]
  - Dengue fever [Recovered/Resolved]
  - Faeces discoloured [Recovered/Resolved]
  - Tremor [Recovering/Resolving]
  - Haemorrhage [Unknown]
  - Gastrointestinal ulcer [Unknown]
  - Gastric ulcer [Unknown]
  - Wheelchair user [Unknown]
  - Balance disorder [Unknown]
  - Arthropathy [Unknown]
  - Hypersensitivity [Unknown]
  - Urinary tract infection [Unknown]
  - Confusional state [Unknown]
